FAERS Safety Report 6055823-2 (Version None)
Quarter: 2009Q1

REPORT INFORMATION
  Report Type: 
  Country: None (occurrence: None)
  Receive Date: 20090126
  Receipt Date: 20090115
  Transmission Date: 20090719
  Serious: Yes (Hospitalization)
  Sender: FDA-Public Use
  Company Number: 2008JP004687

PATIENT
  Age: 37 Year
  Sex: Male
  Weight: 79 kg

DRUGS (21)
  1. FUNGUARD(MICAFUNGIN) INJECTION [Suspect]
     Dosage: 50 MG/D, IV DRIP
     Route: 041
     Dates: start: 20080916, end: 20080916
  2. IOPAMIRON(IOPAMIDOL) INJECTION [Suspect]
     Dosage: IV DRIP, IV DRIP
     Route: 041
     Dates: start: 20080901
  3. IOPAMIRON(IOPAMIDOL) INJECTION [Suspect]
     Dosage: IV DRIP, IV DRIP
     Route: 041
     Dates: start: 20081007
  4. RAMITECT(TERBINAFINE HYDROCHLORIDE) PER ORAL NOS [Suspect]
     Indication: TINEA PEDIS
     Dosage: 125 MG, ORAL
     Route: 048
     Dates: start: 20080902, end: 20080915
  5. CALONAL(PARACETAMOL) PER ORAL NOS [Suspect]
     Indication: PYREXIA
     Dosage: PRN, ORAL
     Route: 048
     Dates: start: 20080905, end: 20080917
  6. KENTAN(LOXOPROFEN SODIUM) PER ORAL NOS [Suspect]
     Indication: PYREXIA
     Dosage: ORAL; PRN, ORAL
     Route: 048
     Dates: start: 20080903, end: 20080908
  7. KENTAN(LOXOPROFEN SODIUM) PER ORAL NOS [Suspect]
     Indication: PYREXIA
     Dosage: ORAL; PRN, ORAL
     Route: 048
     Dates: start: 20080910, end: 20080913
  8. LIPITOR [Concomitant]
  9. UROKINASE (UROKINASE) INJECTION [Concomitant]
  10. NOVO HEPARIN INJECTION [Concomitant]
  11. PARIET (RABEPRAZOLE SODIUM) PER ORAL NOS [Concomitant]
  12. WARFARIN SODIUM [Concomitant]
  13. VANCOMYCIN [Concomitant]
  14. ZYRTEC (CETIRIZINE HYDROCHLORIDE) PER ORAL NOS [Concomitant]
  15. FORSENID (SENNOSIDE A+B) FORMULATION UNKNOWN [Concomitant]
  16. MEROPEN (MEROPENEM) FORMULATION UNKNOWN [Concomitant]
  17. SOL-MELCORT (METHYLPREDNISOLONE SODIUM SUCCINATE) FORMULATION UNKNOWN [Concomitant]
  18. LEBENIN (STREPTOCOCCUS FAECALIS, LACTOBACILLUS BIFIDUS, LYOPHILIZED, L [Concomitant]
  19. ATARAX-P (HYDROXYZINE HYDROCHLORIDE) FORMULATION UNKNOWN [Concomitant]
  20. POLARAMINE (CHLORPHENAMINE MALEATE) FORMULATION UNKNOWN [Concomitant]
  21. RINDERON (BETAMETHASONE) FORMULATION UNKNOWN [Concomitant]

REACTIONS (9)
  - ALANINE AMINOTRANSFERASE INCREASED [None]
  - ASPARTATE AMINOTRANSFERASE INCREASED [None]
  - BLOOD ALKALINE PHOSPHATASE INCREASED [None]
  - BLOOD LACTATE DEHYDROGENASE INCREASED [None]
  - CONTRAST MEDIA ALLERGY [None]
  - GAMMA-GLUTAMYLTRANSFERASE INCREASED [None]
  - HEPATIC FUNCTION ABNORMAL [None]
  - PYREXIA [None]
  - RASH [None]
